FAERS Safety Report 23613151 (Version 1)
Quarter: 2024Q1

REPORT INFORMATION
  Report Type: Report from Study
  Country: US (occurrence: US)
  Receive Date: 20240308
  Receipt Date: 20240308
  Transmission Date: 20240410
  Serious: Yes (Other)
  Sender: FDA-Public Use
  Company Number: US-JAZZ PHARMACEUTICALS-2023-US-004545

PATIENT
  Age: 69 Year
  Sex: Female

DRUGS (6)
  1. XYREM [Suspect]
     Active Substance: SODIUM OXYBATE
     Indication: Hypersomnia
     Dosage: 3 GRAM, BID
     Dates: start: 202301
  2. XYREM [Suspect]
     Active Substance: SODIUM OXYBATE
     Dosage: 1 GRAM, BID
     Route: 048
     Dates: start: 20230209
  3. XYREM [Suspect]
     Active Substance: SODIUM OXYBATE
     Dosage: 3 GRAM, EVERY 6 MONTHS
  4. XYREM [Suspect]
     Active Substance: SODIUM OXYBATE
     Dosage: 3 GRAM, BID
  5. TRIAMCINOLONE [Concomitant]
     Active Substance: TRIAMCINOLONE
     Indication: Product used for unknown indication
     Dosage: UNK
     Dates: start: 20170324
  6. TYLENOL PM, EXTRA STRENGTH [Concomitant]
     Indication: Product used for unknown indication
     Dosage: UNK
     Dates: start: 20231010

REACTIONS (12)
  - Blood pressure increased [Unknown]
  - Tooth extraction [Unknown]
  - Irritable bowel syndrome [Recovering/Resolving]
  - Head injury [Unknown]
  - Eye contusion [Unknown]
  - Paranasal sinus discomfort [Unknown]
  - Urinary tract infection [Recovered/Resolved]
  - Feeling abnormal [Unknown]
  - Fall [Unknown]
  - Off label use [Unknown]
  - Treatment noncompliance [Unknown]
  - Product administration interrupted [Unknown]

NARRATIVE: CASE EVENT DATE: 20230101
